FAERS Safety Report 21608418 (Version 1)
Quarter: 2022Q4

REPORT INFORMATION
  Report Type: Spontaneous
  Country: TR (occurrence: TR)
  Receive Date: 20221117
  Receipt Date: 20221117
  Transmission Date: 20230112
  Serious: Yes (Other)
  Sender: FDA-Public Use
  Company Number: TR-BAYER-2022P021705

PATIENT

DRUGS (1)
  1. EYLEA [Suspect]
     Active Substance: AFLIBERCEPT
     Indication: Product used for unknown indication
     Dosage: UNK, SOLUTION FOR INJETCION, STRENGTH: 40 MG/ML
     Route: 031

REACTIONS (6)
  - Retinal oedema [Unknown]
  - Eye inflammation [Unknown]
  - Inappropriate schedule of product administration [Unknown]
  - Product prescribing issue [Unknown]
  - Vitreous floaters [Recovered/Resolved]
  - Vitreous floaters [Unknown]
